FAERS Safety Report 25691810 (Version 1)
Quarter: 2025Q3

REPORT INFORMATION
  Report Type: Spontaneous
  Country: US (occurrence: US)
  Receive Date: 20250818
  Receipt Date: 20250818
  Transmission Date: 20251020
  Serious: No
  Sender: BAUSCH AND LOMB
  Company Number: US-BAUSCH-BH-2025-016136

PATIENT
  Age: 82 Year
  Sex: Male
  Weight: 84.82 kg

DRUGS (1)
  1. TRULANCE [Suspect]
     Active Substance: PLECANATIDE
     Indication: Irritable bowel syndrome
     Route: 048
     Dates: start: 20250809, end: 20250811

REACTIONS (4)
  - Photophobia [Unknown]
  - Vision blurred [Unknown]
  - Mydriasis [Unknown]
  - Dizziness [Unknown]

NARRATIVE: CASE EVENT DATE: 20250801
